FAERS Safety Report 6444126-X (Version None)
Quarter: 2009Q4

REPORT INFORMATION
  Report Type: 
  Country: None (occurrence: None)
  Receive Date: 20091118
  Receipt Date: 20091109
  Transmission Date: 20100525
  Serious: Yes (Hospitalization)
  Sender: FDA-Public Use
  Company Number: PL-JNJFOC-20091101129

PATIENT
  Sex: Female

DRUGS (5)
  1. REMICADE [Suspect]
     Indication: RHEUMATOID ARTHRITIS
     Route: 042
     Dates: start: 20091019, end: 20091019
  2. FOLIC ACID [Concomitant]
  3. CLINDAMYCIN [Concomitant]
  4. XARTAN [Concomitant]
  5. TIALORID [Concomitant]

REACTIONS (4)
  - INFUSION RELATED REACTION [None]
  - RASH [None]
  - RASH PAPULAR [None]
  - RASH PRURITIC [None]
